FAERS Safety Report 5993292-9 (Version None)
Quarter: 2008Q4

REPORT INFORMATION
  Report Type: 
  Country: None (occurrence: None)
  Receive Date: 20081212
  Receipt Date: 20081203
  Transmission Date: 20090506
  Serious: Yes (Life-Threatening, Hospitalization)
  Sender: FDA-Public Use
  Company Number: PT-BAYER-200832007GPV

PATIENT
  Sex: Female

DRUGS (2)
  1. ADALAT [Suspect]
     Indication: HYPOTENSION
     Route: 048
     Dates: start: 20081124
  2. METHYLDOPA [Concomitant]
     Indication: DRUG USE FOR UNKNOWN INDICATION
     Route: 065

REACTIONS (4)
  - HYPERHIDROSIS [None]
  - PALPITATIONS [None]
  - PRESYNCOPE [None]
  - TACHYCARDIA [None]
